FAERS Safety Report 15980510 (Version 1)
Quarter: 2019Q1

REPORT INFORMATION
  Report Type: Report from Study
  Country: DE (occurrence: DE)
  Receive Date: 20190219
  Receipt Date: 20190219
  Transmission Date: 20190418
  Serious: Yes (Hospitalization)
  Sender: FDA-Public Use
  Company Number: DE-PFIZER INC-2019066052

PATIENT
  Age: 83 Year
  Sex: Female

DRUGS (16)
  1. ENAHEXAL [ENALAPRILAT] [Concomitant]
  2. DIGITOXIN [Concomitant]
     Active Substance: DIGITOXIN
  3. PRADAXA [Concomitant]
     Active Substance: DABIGATRAN ETEXILATE MESYLATE
  4. SPIROBETA [Concomitant]
     Active Substance: SPIRONOLACTONE
  5. ATORVASTATIN [Concomitant]
     Active Substance: ATORVASTATIN
  6. PREDNISOLONE. [Concomitant]
     Active Substance: PREDNISOLONE
  7. FOLSAN [Concomitant]
     Active Substance: FOLIC ACID
  8. METHOTREXATE (METHOTREXATE SODIUM) [Suspect]
     Active Substance: METHOTREXATE SODIUM
     Dosage: 10 MG, WEEKLY
  9. METOPROLOL. [Concomitant]
     Active Substance: METOPROLOL
  10. TOREM [TORASEMIDE] [Concomitant]
     Active Substance: TORSEMIDE
  11. CIRCADIN [Concomitant]
     Active Substance: MELATONIN
  12. HUMALOG [Concomitant]
     Active Substance: INSULIN LISPRO
  13. NO SUBJECT DRUG [Suspect]
     Active Substance: UNSPECIFIED INGREDIENT
     Dosage: NO DOSE GIVEN
  14. HUMIRA [Suspect]
     Active Substance: ADALIMUMAB
     Dosage: 40 MG, EVERY 2 WEEKS
     Route: 058
     Dates: start: 20170621, end: 201709
  15. PANTOZOL CONTROL [Concomitant]
     Active Substance: PANTOPRAZOLE SODIUM
  16. L-THYROXIN [LEVOTHYROXINE SODIUM] [Concomitant]

REACTIONS (1)
  - Cardiomyopathy [Not Recovered/Not Resolved]

NARRATIVE: CASE EVENT DATE: 20170829
